FAERS Safety Report 6402268-9 (Version None)
Quarter: 2009Q4

REPORT INFORMATION
  Report Type: 
  Country: None (occurrence: None)
  Receive Date: 20091015
  Receipt Date: 20091002
  Transmission Date: 20100525
  Serious: Yes (Disabling)
  Sender: FDA-Public Use
  Company Number: PHHY2009NL42512

PATIENT
  Sex: Male

DRUGS (2)
  1. ZOMETA [Suspect]
     Indication: PROSTATE CANCER
     Dosage: ONCE EVERY 4 WEEKS
     Route: 042
  2. ZOMETA [Suspect]
     Dosage: ONCE EVERY 12 WEEKS
     Route: 042
     Dates: end: 20090701

REACTIONS (5)
  - GAIT DISTURBANCE [None]
  - INTERVERTEBRAL DISC SPACE NARROWING [None]
  - MUSCULOSKELETAL STIFFNESS [None]
  - SENSORY LOSS [None]
  - WALKING AID USER [None]
